FAERS Safety Report 11872780 (Version 2)
Quarter: 2019Q1

REPORT INFORMATION
  Report Type: Spontaneous
  Country: US (occurrence: US)
  Receive Date: 20151228
  Receipt Date: 20190121
  Transmission Date: 20190417
  Serious: No
  Sender: FDA-Public Use
  Company Number: US-PFIZER INC-2015420370

PATIENT
  Sex: Female

DRUGS (17)
  1. BROMPHENIRAMINE MALEATE W/PHENYLEPHRINE HYDROCHLORIDE/PHENYLPROPANOLAM [Suspect]
     Active Substance: BROMPHENIRAMINE MALEATE\PHENYLEPHRINE HYDROCHLORIDE\PHENYLPROPANOLAMINE HYDROCHLORIDE
     Dosage: UNK
  2. BROMPHENIRAMINE [Suspect]
     Active Substance: BROMPHENIRAMINE
     Dosage: UNK
  3. DEXTROSE 5% [Suspect]
     Active Substance: DEXTROSE
     Dosage: UNK
  4. GILENYA [Suspect]
     Active Substance: FINGOLIMOD HYDROCHLORIDE
     Dosage: UNK
  5. NIASPAN [Suspect]
     Active Substance: NIACIN
     Dosage: UNK
  6. NIACIN. [Suspect]
     Active Substance: NIACIN
     Dosage: UNK
  7. DEMEROL [Suspect]
     Active Substance: MEPERIDINE HYDROCHLORIDE
     Dosage: UNK
  8. DAYPRO [Suspect]
     Active Substance: OXAPROZIN
     Dosage: UNK
  9. FINGOLIMOD. [Suspect]
     Active Substance: FINGOLIMOD
     Dosage: UNK
  10. CLINDAMYCIN HCL [Suspect]
     Active Substance: CLINDAMYCIN HYDROCHLORIDE
     Dosage: UNK
  11. OXAPROZIN. [Suspect]
     Active Substance: OXAPROZIN
     Dosage: UNK
  12. TEQUIN [Suspect]
     Active Substance: GATIFLOXACIN
     Dosage: UNK
  13. GATIFLOXACIN. [Suspect]
     Active Substance: GATIFLOXACIN
     Dosage: UNK
  14. LIDOCAINE HCL [Suspect]
     Active Substance: LIDOCAINE HYDROCHLORIDE
     Dosage: UNK
  15. MEPERIDINE HCL [Suspect]
     Active Substance: MEPERIDINE HYDROCHLORIDE
     Dosage: UNK
  16. VICKS DAYQUIL [Suspect]
     Active Substance: DEXTROMETHORPHAN HYDROBROMIDE\GUAIFENESIN
     Dosage: UNK
  17. AMOXICILLIN TRIHYDRATE [Suspect]
     Active Substance: AMOXICILLIN
     Dosage: UNK

REACTIONS (1)
  - Drug hypersensitivity [Unknown]
